FAERS Safety Report 25789434 (Version 1)
Quarter: 2025Q3

REPORT INFORMATION
  Report Type: Spontaneous
  Country: US (occurrence: US)
  Receive Date: 20250911
  Receipt Date: 20250911
  Transmission Date: 20251020
  Serious: Yes (Other)
  Sender: COOPERSURGICAL
  Company Number: US-COOPERSURGICAL, INC.-2025CPS006496

PATIENT
  Age: 25 Year
  Sex: Female
  Weight: 115.65 kg

DRUGS (3)
  1. PARAGARD T 380A [Suspect]
     Active Substance: COPPER
     Indication: Contraception
     Route: 015
     Dates: start: 20170714
  2. LISINOPRIL [Concomitant]
     Active Substance: LISINOPRIL
     Dates: start: 2010, end: 20240313
  3. SERTRALINE [Concomitant]
     Active Substance: SERTRALINE HYDROCHLORIDE
     Dates: start: 2012

REACTIONS (11)
  - Reproductive complication associated with device [Unknown]
  - Device breakage [Recovered/Resolved]
  - Foreign body in urogenital tract [Recovered/Resolved]
  - Complication of device removal [Recovered/Resolved]
  - Embedded device [Unknown]
  - Uterine cervical pain [Not Recovered/Not Resolved]
  - Emotional distress [Unknown]
  - Abnormal uterine bleeding [Not Recovered/Not Resolved]
  - Pain [Unknown]
  - Muscle spasms [Unknown]
  - Dyspareunia [Unknown]

NARRATIVE: CASE EVENT DATE: 20231211
